FAERS Safety Report 7401175-2 (Version None)
Quarter: 2011Q2

REPORT INFORMATION
  Report Type: 
  Country: None (occurrence: None)
  Receive Date: 20110407
  Receipt Date: 20110131
  Transmission Date: 20111010
  Serious: Yes (Death, Hospitalization, Other)
  Sender: FDA-Public Use
  Company Number: PHFR2011GB00916

PATIENT
  Sex: Male

DRUGS (2)
  1. CITALOPRAM [Concomitant]
  2. CLOZARIL [Suspect]
     Indication: SCHIZOPHRENIA
     Dosage: UNK
     Route: 048
     Dates: start: 20090210

REACTIONS (9)
  - LUNG NEOPLASM MALIGNANT [None]
  - MENTAL DISORDER DUE TO A GENERAL MEDICAL CONDITION [None]
  - INFECTION [None]
  - METASTASES TO DIAPHRAGM [None]
  - DRUG LEVEL INCREASED [None]
  - WHITE BLOOD CELL COUNT INCREASED [None]
  - WEIGHT DECREASED [None]
  - METASTASES TO CENTRAL NERVOUS SYSTEM [None]
  - BODY TEMPERATURE INCREASED [None]
